FAERS Safety Report 5471082-3 (Version None)
Quarter: 2007Q3

REPORT INFORMATION
  Report Type: 
  Country: None (occurrence: None)
  Receive Date: 20070928
  Receipt Date: 20070912
  Transmission Date: 20080115
  Serious: Yes (Life-Threatening)
  Sender: FDA-Public Use
  Company Number: JP-ASTRAZENECA-2007AP05372

PATIENT
  Age: 10094 Day
  Sex: Male

DRUGS (8)
  1. SEROQUEL [Suspect]
     Indication: SCHIZOPHRENIA
     Route: 048
     Dates: start: 20060101, end: 20060625
  2. SEROQUEL [Suspect]
     Route: 048
     Dates: start: 20060625, end: 20070507
  3. SEROQUEL [Suspect]
     Route: 048
     Dates: start: 20070507, end: 20070717
  4. SEROQUEL [Suspect]
     Route: 048
     Dates: start: 20070717, end: 20070723
  5. SEROQUEL [Suspect]
     Route: 048
     Dates: start: 20070723, end: 20070813
  6. ZYPREXA [Suspect]
     Indication: SCHIZOPHRENIA
     Route: 048
     Dates: start: 20060701, end: 20070813
  7. SILECE [Suspect]
     Indication: SCHIZOPHRENIA
     Route: 048
     Dates: start: 20070501, end: 20070813
  8. LEXOTAN [Suspect]
     Indication: SCHIZOPHRENIA
     Route: 048
     Dates: start: 20050201, end: 20070813

REACTIONS (1)
  - HEPATIC FUNCTION ABNORMAL [None]
